FAERS Safety Report 8510689-3 (Version None)
Quarter: 2012Q3

REPORT INFORMATION
  Report Type: 
  Country: None (occurrence: None)
  Receive Date: 20120709
  Receipt Date: 20120709
  Transmission Date: 20120928
  Serious: No
  Sender: FDA-Public Use
  Company Number: None

PATIENT
  Age: 13 Year
  Sex: Male

DRUGS (1)
  1. KEPPRA [Suspect]
     Dosage: 100 MG/ML SOLUTION ORAL, BOTTLE 500 ML
     Route: 048

REACTIONS (3)
  - DRUG DISPENSING ERROR [None]
  - OVERDOSE [None]
  - ADVERSE EVENT [None]
